FAERS Safety Report 7012645-3 (Version None)
Quarter: 2010Q3

REPORT INFORMATION
  Report Type: 
  Country: None (occurrence: None)
  Receive Date: 20100924
  Receipt Date: 20100917
  Transmission Date: 20110219
  Serious: Yes (Life-Threatening)
  Sender: FDA-Public Use
  Company Number: FR-SANOFI-AVENTIS-2010SA055990

PATIENT
  Age: 39 Year
  Sex: Female

DRUGS (18)
  1. TAXOTERE [Suspect]
     Indication: BREAST CANCER
     Route: 042
     Dates: start: 20050501
  2. TAXOTERE [Suspect]
     Route: 042
     Dates: start: 20080701, end: 20100601
  3. TAXOTERE [Suspect]
     Route: 042
     Dates: start: 20080701, end: 20100601
  4. TAXOTERE [Suspect]
     Route: 042
     Dates: start: 20080701, end: 20100601
  5. TAXOTERE [Suspect]
     Route: 042
     Dates: start: 20080701, end: 20100601
  6. EPIRUBICIN [Suspect]
     Indication: BREAST CANCER
     Route: 042
     Dates: start: 20050501
  7. FARMORUBICIN [Suspect]
     Indication: BREAST CANCER
     Route: 042
     Dates: start: 20080701, end: 20100601
  8. FARMORUBICIN [Suspect]
     Route: 042
     Dates: start: 20080701, end: 20100601
  9. FARMORUBICIN [Suspect]
     Route: 042
     Dates: start: 20080701, end: 20100601
  10. FARMORUBICIN [Suspect]
     Route: 042
     Dates: start: 20080701, end: 20100601
  11. CYCLOPHOSPHAMIDE [Suspect]
     Indication: BREAST CANCER
     Route: 042
     Dates: start: 20050501, end: 20050701
  12. VINORELBINE [Concomitant]
     Route: 042
     Dates: start: 20080101, end: 20090101
  13. AVASTIN [Concomitant]
     Route: 042
     Dates: start: 20080101, end: 20090101
  14. AVASTIN [Concomitant]
     Dosage: MONOTHERAPY EVERY 2 WEEKS
     Route: 042
     Dates: start: 20090101, end: 20100601
  15. FLUOROURACIL [Concomitant]
     Route: 042
     Dates: start: 20050501, end: 20050601
  16. THERAPEUTIC RADIOPHARMACEUTICALS [Concomitant]
  17. NOLVADEX [Concomitant]
  18. ZOLADEX [Concomitant]

REACTIONS (1)
  - ACUTE MYELOID LEUKAEMIA [None]
